FAERS Safety Report 26126659 (Version 1)
Quarter: 2025Q4

REPORT INFORMATION
  Report Type: Spontaneous
  Country: CN (occurrence: CN)
  Receive Date: 20251205
  Receipt Date: 20251205
  Transmission Date: 20260117
  Serious: Yes (Life-Threatening, Other)
  Sender: AMGEN
  Company Number: CN-AMGEN-CHNSP2025237862

PATIENT
  Age: 62 Year
  Sex: Male
  Weight: 68 kg

DRUGS (1)
  1. CARFILZOMIB [Suspect]
     Active Substance: CARFILZOMIB
     Indication: Plasma cell myeloma
     Dosage: 50 MILLIGRAM, 2 TIMES/WK
     Route: 040
     Dates: start: 20251119, end: 20251120

REACTIONS (1)
  - Myelosuppression [Unknown]

NARRATIVE: CASE EVENT DATE: 20251125
